FAERS Safety Report 7518785-4 (Version None)
Quarter: 2011Q2

REPORT INFORMATION
  Report Type: 
  Country: None (occurrence: None)
  Receive Date: 20110602
  Receipt Date: 20110526
  Transmission Date: 20111010
  Serious: No
  Sender: FDA-Public Use
  Company Number: US-PFIZER INC-2011114447

PATIENT
  Sex: Female

DRUGS (2)
  1. GENOTROPIN [Suspect]
     Indication: BODY HEIGHT BELOW NORMAL
     Dosage: 1 MG, 1X/DAY
     Route: 058
     Dates: start: 20110201
  2. GENOTROPIN [Suspect]
     Indication: DWARFISM

REACTIONS (1)
  - ARTHRALGIA [None]
